FAERS Safety Report 10488428 (Version 1)
Quarter: 2014Q4

REPORT INFORMATION
  Report Type: Spontaneous
  Country: US (occurrence: None)
  Receive Date: 20141001
  Receipt Date: 20141001
  Transmission Date: 20150528
  Serious: No
  Sender: FDA-Public Use
  Company Number: None

PATIENT
  Sex: Female
  Weight: 77.11 kg

DRUGS (9)
  1. DILTIAZEM HYDROCHLORIDE EXTENDED RELEASE [Suspect]
     Active Substance: DILTIAZEM HYDROCHLORIDE
     Indication: ATRIAL FIBRILLATION
     Dosage: 24 HR CAP AB2
     Route: 048
  2. VITAL B-100 [Concomitant]
  3. AMILORIDE [Concomitant]
     Active Substance: AMILORIDE
  4. CLONIDINE. [Concomitant]
     Active Substance: CLONIDINE
  5. DILTIAZEM [Concomitant]
     Active Substance: DILTIAZEM
  6. LEVOTHYROXINE [Concomitant]
     Active Substance: LEVOTHYROXINE
  7. KLOR-CON [Concomitant]
     Active Substance: POTASSIUM CHLORIDE
  8. VISION SUPPORT [Concomitant]
  9. VITAMIN C [Concomitant]
     Active Substance: ASCORBIC ACID

REACTIONS (2)
  - Eye burns [None]
  - Erythema [None]
